FAERS Safety Report 14002468 (Version 1)
Quarter: 2017Q3

REPORT INFORMATION
  Report Type: Spontaneous
  Country: FR (occurrence: FR)
  Receive Date: 20170922
  Receipt Date: 20170922
  Transmission Date: 20171128
  Serious: Yes (Other)
  Sender: FDA-Public Use
  Company Number: FR-MERCK KGAA-2027416

PATIENT
  Sex: Female

DRUGS (1)
  1. NOVOTHYROX [Suspect]
     Active Substance: LEVOTHYROXINE SODIUM
     Indication: POST PROCEDURAL HYPOTHYROIDISM

REACTIONS (7)
  - Diarrhoea [None]
  - Blood pressure abnormal [None]
  - Arrhythmia [None]
  - Blood thyroid stimulating hormone increased [None]
  - Anxiety [None]
  - Alopecia [None]
  - Discomfort [None]
